FAERS Safety Report 6064023-1 (Version None)
Quarter: 2009Q1

REPORT INFORMATION
  Report Type: 
  Country: None (occurrence: None)
  Receive Date: 20090203
  Receipt Date: 20090203
  Transmission Date: 20090719
  Serious: Yes (Hospitalization)
  Sender: FDA-Public Use
  Company Number: None

PATIENT
  Age: 84 Year
  Sex: Male

DRUGS (1)
  1. DECITABINE [Suspect]
     Indication: ACUTE MYELOID LEUKAEMIA
     Dosage: 28 MG EVERY DAY IV
     Route: 042
     Dates: start: 20081203, end: 20081216

REACTIONS (4)
  - ASTHENIA [None]
  - MALAISE [None]
  - NAUSEA [None]
  - VOMITING [None]
